FAERS Safety Report 9160198 (Version 3)
Quarter: 2013Q2

REPORT INFORMATION
  Report Type: Spontaneous
  Country: IT (occurrence: IT)
  Receive Date: 20130313
  Receipt Date: 20130418
  Transmission Date: 20140414
  Serious: Yes (Hospitalization)
  Sender: FDA-Public Use
  Company Number: IT-ROCHE-1201087

PATIENT
  Sex: Female
  Weight: 19 kg

DRUGS (1)
  1. RIVOTRIL [Suspect]
     Indication: DRUG ADMINISTRATION ERROR
     Route: 048
     Dates: start: 20130225, end: 20130225

REACTIONS (3)
  - Ataxia [Recovered/Resolved]
  - Visual acuity reduced [Recovered/Resolved]
  - Wrong drug administered [Unknown]
